FAERS Safety Report 6055215-6 (Version None)
Quarter: 2009Q1

REPORT INFORMATION
  Report Type: 
  Country: None (occurrence: None)
  Receive Date: 20090128
  Receipt Date: 20090121
  Transmission Date: 20090719
  Serious: Yes (Other)
  Sender: FDA-Public Use
  Company Number: JP-JNJFOC-20090103888

PATIENT
  Age: 70 Year
  Sex: Male

DRUGS (7)
  1. ITRIZOLE [Suspect]
     Indication: DRUG USE FOR UNKNOWN INDICATION
     Dosage: PULSE THERAPY
     Route: 048
  2. CANSELIN [Interacting]
     Indication: DRUG USE FOR UNKNOWN INDICATION
     Route: 048
  3. LIPITOR [Concomitant]
     Route: 048
  4. ACE INHIBITOR [Concomitant]
     Route: 065
  5. BETA BLOCKER [Concomitant]
     Route: 065
  6. RENIVEZE [Concomitant]
     Route: 048
  7. TOWAMIN [Concomitant]
     Route: 048

REACTIONS (2)
  - DRUG INTERACTION [None]
  - OEDEMA PERIPHERAL [None]
